FAERS Safety Report 4557549-0 (Version None)
Quarter: 2005Q1

REPORT INFORMATION
  Report Type: 
  Country: None (occurrence: None)
  Receive Date: 20050120
  Receipt Date: 20050114
  Transmission Date: 20050727
  Serious: Yes (Hospitalization)
  Sender: FDA-Public Use
  Company Number: DK-MERCK-0501DNK00017

PATIENT
  Age: 49 Year
  Sex: Female

DRUGS (2)
  1. ZETIA [Suspect]
     Indication: TYPE IIA HYPERLIPIDAEMIA
     Route: 048
     Dates: start: 20031222, end: 20041028
  2. ATORVASTATIN CALCIUM [Concomitant]
     Indication: TYPE IIA HYPERLIPIDAEMIA
     Route: 048
     Dates: start: 20010103

REACTIONS (1)
  - MYOSITIS [None]
